FAERS Safety Report 9674249 (Version 3)
Quarter: 2014Q2

REPORT INFORMATION
  Report Type: Report from Study
  Country: JP (occurrence: JP)
  Receive Date: 20131107
  Receipt Date: 20140409
  Transmission Date: 20141212
  Serious: Yes (Other)
  Sender: FDA-Public Use
  Company Number: JP-AMGEN-JPNCT2013068253

PATIENT
  Age: 73 Year
  Sex: Male
  Weight: 55 kg

DRUGS (20)
  1. DENOSUMAB [Suspect]
     Indication: METASTASES TO BONE
     Dosage: 120 MG,/2013/9/9   EVERY
     Route: 058
     Dates: start: 20130909, end: 20130909
  2. DENOSUMAB [Suspect]
     Dosage: 2013/9/9   EVERY
     Route: 058
     Dates: start: 20130909, end: 20130909
  3. DENOTAS [Concomitant]
     Dosage: AFTER BREAKFAST EVERY
     Route: 048
     Dates: start: 20130909
  4. ASPARA-CA [Concomitant]
     Indication: PRODUCT USED FOR UNKNOWN INDICATION
     Route: 048
     Dates: start: 20130918, end: 20130925
  5. ALFAROL [Concomitant]
     Indication: PRODUCT USED FOR UNKNOWN INDICATION
     Dosage: UNK
     Route: 048
     Dates: start: 20130925
  6. MAGLAX [Concomitant]
     Indication: PRODUCT USED FOR UNKNOWN INDICATION
     Dosage: AFTER EACH MEALS
     Route: 065
     Dates: start: 20130909
  7. CARBOPLATIN [Concomitant]
     Dosage: UNKNOWN
     Route: 065
     Dates: start: 20110720, end: 20110810
  8. CDDP [Concomitant]
     Dosage: UNKNOWN
     Route: 065
     Dates: start: 20110421, end: 20110628
  9. VP-16 [Concomitant]
     Dosage: UNKNOWN
     Route: 065
     Dates: start: 20110421, end: 20110628
  10. NGT [Concomitant]
     Dosage: UNKNOWN
     Route: 065
     Dates: start: 20120904, end: 20130115
  11. DOCETAXEL [Concomitant]
     Dosage: UNK
     Route: 065
     Dates: start: 20130710, end: 20130710
  12. OXYCONTIN [Concomitant]
     Dosage: AT 10 AND 22 O^CLOCK
     Route: 065
     Dates: start: 20130909
  13. NOVAMIN                            /00013301/ [Concomitant]
     Dosage: BEFORE EACH MEALS
     Route: 065
     Dates: start: 20130909
  14. RINDERON                           /00008501/ [Concomitant]
     Dosage: AFER BREAKFAST
     Route: 065
     Dates: start: 20130909
  15. TRAVELMIN                          /00141802/ [Concomitant]
     Dosage: AT NAUSEA
     Route: 065
     Dates: start: 20130909
  16. MEDICON                            /00048102/ [Concomitant]
     Dosage: AFTER EACH MEALS
     Route: 065
     Dates: start: 20130909
  17. CALONAL [Concomitant]
     Dosage: AFTER EACH MEALS
     Route: 065
     Dates: start: 20130909
  18. ENSURE                             /07421001/ [Concomitant]
     Dosage: AT LUNCHTIME
     Route: 065
     Dates: start: 20130909
  19. BROCIN-CODEINE [Concomitant]
     Dosage: AFTER EACH MEALS
     Route: 065
  20. PACLITAXEL [Concomitant]
     Dosage: UNKNOWN
     Route: 065

REACTIONS (3)
  - Hypermagnesaemia [Recovering/Resolving]
  - Hypophosphataemia [Not Recovered/Not Resolved]
  - Hypocalcaemia [Recovering/Resolving]
